FAERS Safety Report 20371591 (Version 2)
Quarter: 2022Q1

REPORT INFORMATION
  Report Type: Spontaneous
  Country: DE (occurrence: DE)
  Receive Date: 20220124
  Receipt Date: 20220204
  Transmission Date: 20220423
  Serious: Yes (Other)
  Sender: FDA-Public Use
  Company Number: DE-AMERICAN REGENT INC-2022000177

PATIENT
  Age: 43 Year
  Sex: Male

DRUGS (1)
  1. FERINJECT [Suspect]
     Active Substance: FERRIC CARBOXYMALTOSE
     Indication: Product used for unknown indication
     Dosage: UNK

REACTIONS (4)
  - Osteonecrosis [Recovering/Resolving]
  - Osteoporosis [Recovering/Resolving]
  - Osteitis [Recovering/Resolving]
  - Osteomalacia [Recovering/Resolving]

NARRATIVE: CASE EVENT DATE: 20150101
